FAERS Safety Report 21627502 (Version 1)
Quarter: 2022Q4

REPORT INFORMATION
  Report Type: Spontaneous
  Country: US (occurrence: None)
  Receive Date: 20221121
  Receipt Date: 20221121
  Transmission Date: 20230113
  Serious: Yes (Other)
  Sender: FDA-Public Use
  Company Number: None

PATIENT
  Age: 78 Year
  Sex: Male
  Weight: 72.9 kg

DRUGS (9)
  1. PAXLOVID [Suspect]
     Active Substance: NIRMATRELVIR\RITONAVIR
     Indication: COVID-19
     Dosage: FREQUENCY : TWICE A DAY;?
     Route: 048
     Dates: start: 20221115, end: 20221117
  2. LISINOPRIL [Concomitant]
     Active Substance: LISINOPRIL
  3. TAMSULOSIN [Concomitant]
     Active Substance: TAMSULOSIN
  4. MONTELUKAST [Concomitant]
     Active Substance: MONTELUKAST SODIUM
  5. Budesinide [Concomitant]
  6. FORMOTEROL [Concomitant]
     Active Substance: FORMOTEROL
  7. METOPROLOL [Concomitant]
     Active Substance: METOPROLOL
  8. EZETIMIBE [Concomitant]
     Active Substance: EZETIMIBE
  9. Daily vit [Concomitant]

REACTIONS (3)
  - Diarrhoea [None]
  - Proctalgia [None]
  - Insomnia [None]

NARRATIVE: CASE EVENT DATE: 20221115
